FAERS Safety Report 9467555 (Version 2)
Quarter: 2013Q4

REPORT INFORMATION
  Report Type: Spontaneous
  Country: FR (occurrence: FR)
  Receive Date: 20130821
  Receipt Date: 20131114
  Transmission Date: 20140711
  Serious: Yes (Hospitalization)
  Sender: FDA-Public Use
  Company Number: FR-ASTRAZENECA-2013SE63098

PATIENT
  Age: 26672 Day
  Sex: Male

DRUGS (2)
  1. BRILIQUE [Suspect]
     Route: 048
     Dates: start: 20130610, end: 20130702
  2. KARDEGIC [Interacting]
     Route: 048
     Dates: start: 20130610, end: 20130702

REACTIONS (4)
  - Drug interaction [Unknown]
  - Speech disorder [Recovered/Resolved]
  - Dizziness [Recovered/Resolved]
  - Ischaemic stroke [Recovered/Resolved]
